FAERS Safety Report 24741889 (Version 1)
Quarter: 2024Q4

REPORT INFORMATION
  Report Type: Spontaneous
  Country: US (occurrence: None)
  Receive Date: 20241213
  Receipt Date: 20241213
  Transmission Date: 20250114
  Serious: Yes (Other)
  Sender: Public
  Company Number: None

PATIENT
  Age: 64 Year
  Sex: Female
  Weight: 175 kg

DRUGS (1)
  1. GAMMAGARD S/D [Suspect]
     Active Substance: HUMAN IMMUNOGLOBULIN G
     Indication: Chronic inflammatory demyelinating polyradiculoneuropathy
     Dosage: 44 G GRAM(S) QD X 2 DAYS  Q2WKS INTRAVENOUS?
     Route: 042
     Dates: start: 20240809

REACTIONS (2)
  - Chest discomfort [None]
  - Paraesthesia oral [None]

NARRATIVE: CASE EVENT DATE: 20241213
